FAERS Safety Report 4519013-4 (Version None)
Quarter: 2004Q4

REPORT INFORMATION
  Report Type: 
  Country: None (occurrence: None)
  Receive Date: 20041203
  Receipt Date: 20041203
  Transmission Date: 20050328
  Serious: Yes (Hospitalization)
  Sender: FDA-Public Use
  Company Number: None

PATIENT
  Age: 70 Year
  Sex: Male
  Weight: 117 kg

DRUGS (9)
  1. PANGLOBULIN [Suspect]
     Indication: ANAEMIA HAEMOLYTIC AUTOIMMUNE
     Dosage: 100 GRAMS IV X 2 DOSES
     Route: 042
     Dates: start: 20040930
  2. PANGLOBULIN [Suspect]
     Indication: ANAEMIA HAEMOLYTIC AUTOIMMUNE
     Dosage: 100 GRAMS IV X 2 DOSES
     Route: 042
     Dates: start: 20041001
  3. BACTRIM DS [Concomitant]
  4. VALACYCLOVIR HCL [Concomitant]
  5. HYDROCHLOROTHIAZIDE [Concomitant]
  6. DOXAZOSIN [Concomitant]
  7. AMLODOPINE [Concomitant]
  8. ATENOLOL [Concomitant]
  9. GLIPIZIDE [Concomitant]

REACTIONS (4)
  - ANURIA [None]
  - DYSPNOEA EXACERBATED [None]
  - FATIGUE [None]
  - OEDEMA PERIPHERAL [None]
